FAERS Safety Report 7834773-2 (Version None)
Quarter: 2011Q4

REPORT INFORMATION
  Report Type: 
  Country: None (occurrence: None)
  Receive Date: 20111024
  Receipt Date: 20111014
  Transmission Date: 20120403
  Serious: Yes (Other)
  Sender: FDA-Public Use
  Company Number: US-JNJFOC-20111008550

PATIENT
  Age: 41 Year
  Sex: Female
  Weight: 97.52 kg

DRUGS (1)
  1. NEUTROGENA T/GEL THERAPEUTIC SHAMPOO ORIGINAL FORMULA [Suspect]
     Indication: DANDRUFF
     Dosage: 1 QUARTER-SIZE APPLICATION
     Route: 061
     Dates: start: 20110730, end: 20110730

REACTIONS (3)
  - HYPERSENSITIVITY [None]
  - PRODUCT ODOUR ABNORMAL [None]
  - ALOPECIA [None]
